FAERS Safety Report 5424182-8 (Version None)
Quarter: 2007Q3

REPORT INFORMATION
  Report Type: 
  Country: None (occurrence: None)
  Receive Date: 20070823
  Receipt Date: 20070811
  Transmission Date: 20080115
  Serious: Yes (Death, Hospitalization)
  Sender: FDA-Public Use
  Company Number: IN-PFIZER INC-2007063197

PATIENT
  Sex: Female
  Weight: 55 kg

DRUGS (6)
  1. SU-011,248 [Suspect]
     Indication: RENAL CELL CARCINOMA STAGE UNSPECIFIED
     Route: 048
     Dates: start: 20070528, end: 20070731
  2. COLSPRIN [Concomitant]
     Route: 048
  3. CARVEDILOL [Concomitant]
     Route: 048
     Dates: start: 20070629
  4. RAMIPRIL [Concomitant]
     Route: 048
     Dates: start: 20070628
  5. FLUDROCORTISONE ACETATE [Concomitant]
     Route: 048
     Dates: start: 20070629
  6. LASIX [Concomitant]
     Route: 048
     Dates: start: 20070705

REACTIONS (10)
  - BLOOD CHLORIDE DECREASED [None]
  - BLOOD POTASSIUM DECREASED [None]
  - CARDIAC ARREST [None]
  - DISEASE PROGRESSION [None]
  - DYSPNOEA [None]
  - GENERALISED OEDEMA [None]
  - HYPONATRAEMIA [None]
  - HYPOPROTEINAEMIA [None]
  - HYPOTENSION [None]
  - PLATELET COUNT DECREASED [None]
